FAERS Safety Report 19206476 (Version 2)
Quarter: 2021Q3

REPORT INFORMATION
  Report Type: Report from Study
  Country: None (occurrence: US)
  Receive Date: 20210503
  Receipt Date: 20210707
  Transmission Date: 20211014
  Serious: Yes (Hospitalization)
  Sender: FDA-Public Use
  Company Number: US-ABBVIE-21K-163-3883381-00

PATIENT
  Sex: Female
  Weight: 44.04 kg

DRUGS (1)
  1. RINVOQ [Suspect]
     Active Substance: UPADACITINIB
     Indication: RHEUMATOID ARTHRITIS
     Dosage: ONCE DAILY
     Route: 048

REACTIONS (2)
  - Abdominal discomfort [Unknown]
  - Gastrointestinal haemorrhage [Not Recovered/Not Resolved]
